FAERS Safety Report 8110215-7 (Version None)
Quarter: 2012Q1

REPORT INFORMATION
  Report Type: 
  Country: None (occurrence: None)
  Receive Date: 20120202
  Receipt Date: 20120126
  Transmission Date: 20120608
  Serious: No
  Sender: FDA-Public Use
  Company Number: US-AMGEN-USASP2012005596

PATIENT
  Age: 38 Year
  Sex: Female
  Weight: 70.29 kg

DRUGS (3)
  1. ENBREL [Suspect]
     Indication: PRODUCT USED FOR UNKNOWN INDICATION
     Dosage: 50 MG, QWK
     Route: 058
  2. VITAMIN B-12 [Concomitant]
     Dosage: 1000 MUG, UNK
  3. IRON [Concomitant]
     Dosage: 18 MG, UNK

REACTIONS (1)
  - NASOPHARYNGITIS [None]
